FAERS Safety Report 10637684 (Version 3)
Quarter: 2015Q1

REPORT INFORMATION
  Report Type: Spontaneous
  Country: FI (occurrence: FI)
  Receive Date: 20141208
  Receipt Date: 20150118
  Transmission Date: 20150720
  Serious: Yes (Disabling, Other)
  Sender: FDA-Public Use
  Company Number: PHHY2014FI156334

PATIENT
  Age: 63 Year
  Sex: Female

DRUGS (12)
  1. GLIVEC [Suspect]
     Active Substance: IMATINIB MESYLATE
     Indication: CHRONIC MYELOID LEUKAEMIA
     Dosage: 400 MG, QD (4 TABLETS)
     Route: 048
     Dates: start: 20140224
  2. NEXIUM [Concomitant]
     Active Substance: ESOMEPRAZOLE MAGNESIUM
     Indication: DYSPEPSIA
     Dosage: 20 MG, QD
     Route: 048
  3. EZETROL [Concomitant]
     Active Substance: EZETIMIBE
     Indication: LIPIDS INCREASED
     Dosage: 10 MG, QD
     Route: 048
  4. SPRYCEL [Suspect]
     Active Substance: DASATINIB
     Indication: CHRONIC MYELOID LEUKAEMIA
     Dosage: 50 MG, QD
     Route: 048
     Dates: start: 20140603
  5. PRIMASPAN [Concomitant]
     Indication: THROMBOSIS
     Dosage: 100 MG, QD
     Route: 048
  6. LESCOL [Concomitant]
     Active Substance: FLUVASTATIN SODIUM
     Indication: LIPIDS INCREASED
     Dosage: 40 MG, QD
     Route: 048
  7. HYDREA [Suspect]
     Active Substance: HYDROXYUREA
     Indication: THROMBOCYTOSIS
     Dosage: 1500 MG, QD
     Route: 065
     Dates: start: 201402, end: 20140309
  8. BISOPROLOL [Concomitant]
     Active Substance: BISOPROLOL
     Indication: CARDIAC DISORDER
     Dosage: 5 MG, QD
     Route: 048
  9. GLIVEC [Suspect]
     Active Substance: IMATINIB MESYLATE
     Dosage: 400 MG, QD
     Route: 048
     Dates: start: 20140317, end: 20140602
  10. GLIVEC [Suspect]
     Active Substance: IMATINIB MESYLATE
     Dosage: UNK
     Route: 048
     Dates: start: 20141215
  11. APURIN [Concomitant]
     Active Substance: ALLOPURINOL
     Indication: THROMBOCYTOSIS
     Dosage: 300 MG, QD
     Route: 065
     Dates: start: 201402
  12. THYROXIN [Concomitant]
     Active Substance: LEVOTHYROXINE
     Indication: HYPOTHYROIDISM
     Dosage: 0.1 MG, QD
     Route: 048

REACTIONS (14)
  - Visual impairment [Unknown]
  - Swelling face [Unknown]
  - Papilloedema [Unknown]
  - Blood thyroid stimulating hormone increased [Recovered/Resolved]
  - Rash erythematous [Unknown]
  - Optic ischaemic neuropathy [Not Recovered/Not Resolved]
  - Papillitis [Unknown]
  - Intraocular pressure increased [Unknown]
  - Eye swelling [Unknown]
  - Thrombocytopenia [Recovered/Resolved]
  - Haemoglobin decreased [Recovered/Resolved]
  - Visual field defect [Unknown]
  - Eosinophilia [Recovered/Resolved]
  - Neutropenia [Recovered/Resolved]

NARRATIVE: CASE EVENT DATE: 2014
